FAERS Safety Report 20847981 (Version 1)
Quarter: 2022Q2

REPORT INFORMATION
  Report Type: Other
  Country: CN (occurrence: None)
  Receive Date: 20220519
  Receipt Date: 20220519
  Transmission Date: 20220721
  Serious: Yes (Other)
  Sender: FDA-Public Use
  Company Number: CN-ROCHE-3095292

PATIENT

DRUGS (6)
  1. BEVACIZUMAB [Suspect]
     Active Substance: BEVACIZUMAB
     Indication: Gastric cancer
     Dosage: 7.5 MG/KG BEVACIZUMAB INJECTION ACCORDING TO BODY WEIGHT, TWICE A DAY, 28 DAYS FOR A COURSE OF TREAT
     Route: 042
  2. OXALIPLATIN [Suspect]
     Active Substance: OXALIPLATIN
     Indication: Gastric cancer
     Dosage: DAY1
     Route: 041
  3. CIMETIDINE [Concomitant]
     Active Substance: CIMETIDINE
     Dosage: FOR 7 DAYS
  4. DEXAMETHASONE [Concomitant]
     Active Substance: DEXAMETHASONE
     Dosage: FOR 7 DAYS
  5. ONDANSETRON [Concomitant]
     Active Substance: ONDANSETRON
     Indication: Vomiting
     Dosage: 15 MIN BEFORE, 4 H AFTER, AND 8 H AFTER CHEMOTHERAPY
     Route: 041
  6. GLYCYRRHIZIN [Concomitant]
     Active Substance: GLYCYRRHIZIN
     Route: 048

REACTIONS (1)
  - Renal failure [Unknown]
